FAERS Safety Report 8450656-1 (Version None)
Quarter: 2012Q2

REPORT INFORMATION
  Report Type: 
  Country: None (occurrence: None)
  Receive Date: 20120620
  Receipt Date: 20120607
  Transmission Date: 20120825
  Serious: Yes (Hospitalization)
  Sender: FDA-Public Use
  Company Number: SE-ASTRAZENECA-2012SE38347

PATIENT
  Age: 44 Year
  Sex: Female

DRUGS (2)
  1. ENTOCORT EC [Suspect]
     Indication: RHEUMATOID ARTHRITIS
     Route: 048
     Dates: start: 20110131
  2. ACTEMRA [Suspect]
     Indication: RHEUMATOID ARTHRITIS
     Dosage: 20MG/ML
     Dates: start: 20110223

REACTIONS (3)
  - PNEUMONIA [None]
  - OFF LABEL USE [None]
  - VIRAL INFECTION [None]
